FAERS Safety Report 9580508 (Version 1)
Quarter: 2013Q4

REPORT INFORMATION
  Report Type: Other
  Country: GB (occurrence: GB)
  Receive Date: 20131002
  Receipt Date: 20131002
  Transmission Date: 20140711
  Serious: Yes (Life-Threatening)
  Sender: FDA-Public Use
  Company Number: GB-TARO PHARMACEUTICALS U.S.A., INC-2013SUN00110

PATIENT
  Sex: Male

DRUGS (2)
  1. WARFARIN [Suspect]
     Indication: PRODUCT USED FOR UNKNOWN INDICATION
     Dosage: UNK
     Route: 048
  2. CLARITHROMYCIN [Interacting]
     Indication: INFECTION
     Dosage: 500 MG, BID
     Route: 048

REACTIONS (3)
  - Drug prescribing error [Unknown]
  - International normalised ratio increased [Recovering/Resolving]
  - Drug interaction [Unknown]
